FAERS Safety Report 10136341 (Version 1)
Quarter: 2014Q2

REPORT INFORMATION
  Report Type: Spontaneous
  Country: US (occurrence: US)
  Receive Date: 20140429
  Receipt Date: 20140429
  Transmission Date: 20141212
  Serious: No
  Sender: FDA-Public Use
  Company Number: US-009507513-1404USA006018

PATIENT
  Age: 4 Year
  Sex: Male

DRUGS (1)
  1. CLARITIN ORAL SOLUTION [Suspect]
     Indication: PRODUCT USED FOR UNKNOWN INDICATION
     Dosage: UNK, ONE THIS MORNING AND ANOTHER JUST A FEW MOMENTS AGO
     Route: 048
     Dates: start: 20140407

REACTIONS (2)
  - Off label use [Unknown]
  - Overdose [Unknown]
